FAERS Safety Report 5567185-5 (Version None)
Quarter: 2007Q4

REPORT INFORMATION
  Report Type: 
  Country: None (occurrence: None)
  Receive Date: 20071219
  Receipt Date: 20071213
  Transmission Date: 20080405
  Serious: Yes (Hospitalization)
  Sender: FDA-Public Use
  Company Number: US-ELI_LILLY_AND_COMPANY-US200712003024

PATIENT
  Age: 74 Year
  Sex: Female

DRUGS (2)
  1. HUMALOG [Suspect]
  2. GLIPIZIDE [Concomitant]
     Dosage: UNK, DAILY (1/D)

REACTIONS (2)
  - BRONCHITIS [None]
  - CELLULITIS [None]
